FAERS Safety Report 24356842 (Version 1)
Quarter: 2024Q3

REPORT INFORMATION
  Report Type: Spontaneous
  Country: US (occurrence: US)
  Receive Date: 20240924
  Receipt Date: 20240924
  Transmission Date: 20241017
  Serious: Yes (Hospitalization)
  Sender: OXFORD PHARMACEUTICALS
  Company Number: US-Oxford Pharmaceuticals, LLC-2161978

PATIENT
  Age: 56 Year
  Sex: Female

DRUGS (3)
  1. SPIRONOLACTONE [Suspect]
     Active Substance: SPIRONOLACTONE
     Indication: Spinal cord injury
  2. ESTROGENS [Suspect]
     Active Substance: ESTROGENS
  3. APIXABAN [Concomitant]
     Active Substance: APIXABAN

REACTIONS (2)
  - Orthostatic hypotension [Unknown]
  - Drug intolerance [Unknown]
